FAERS Safety Report 25283802 (Version 1)
Quarter: 2025Q2

REPORT INFORMATION
  Report Type: Spontaneous
  Country: US (occurrence: None)
  Receive Date: 20250508
  Receipt Date: 20250508
  Transmission Date: 20250717
  Serious: Yes (Death, Hospitalization)
  Sender: FDA-CTU
  Company Number: None

PATIENT
  Age: 73 Year
  Sex: Male

DRUGS (3)
  1. POMALYST [Suspect]
     Active Substance: POMALIDOMIDE
     Indication: Plasma cell myeloma
     Dosage: 4MG DAILY X ...  ORAL ?
     Route: 048
     Dates: start: 20250304, end: 20250315
  2. ISATUXIMAB [Suspect]
     Active Substance: ISATUXIMAB
  3. DEXAMETHASONE [Suspect]
     Active Substance: DEXAMETHASONE

REACTIONS (10)
  - Disease progression [None]
  - Plasma cell myeloma [None]
  - Confusional state [None]
  - Urinary incontinence [None]
  - Fall [None]
  - Mental status changes [None]
  - Delirium [None]
  - Subdural haematoma [None]
  - Infection [None]
  - Insomnia [None]

NARRATIVE: CASE EVENT DATE: 20250418
